FAERS Safety Report 7931744-2 (Version None)
Quarter: 2011Q4

REPORT INFORMATION
  Report Type: 
  Country: None (occurrence: None)
  Receive Date: 20111121
  Receipt Date: 20111116
  Transmission Date: 20120403
  Serious: Yes (Death, Other)
  Sender: FDA-Public Use
  Company Number: PHHY2011JP101027

PATIENT
  Age: 41 Year

DRUGS (1)
  1. PAMIDRONATE DISODIUM [Suspect]
     Dosage: UNK UKN, UNK

REACTIONS (4)
  - MENINGITIS [None]
  - SINUSITIS [None]
  - CEREBRAL INFARCTION [None]
  - OSTEONECROSIS [None]
